FAERS Safety Report 7758853-5 (Version None)
Quarter: 2011Q3

REPORT INFORMATION
  Report Type: 
  Country: None (occurrence: None)
  Receive Date: 20110919
  Receipt Date: 20110913
  Transmission Date: 20111222
  Serious: Yes (Life-Threatening, Hospitalization)
  Sender: FDA-Public Use
  Company Number: NL-TEVA-300673ISR

PATIENT
  Sex: Male
  Weight: 85 kg

DRUGS (9)
  1. SPIRIVA INHALPDR [Concomitant]
  2. VITAMINE D3 [Concomitant]
     Dosage: E/ML
  3. CALCICHEW D3 [Concomitant]
     Dosage: 500MG/400LE
  4. ALENDRONAAT NATRIUM [Concomitant]
  5. LOPERAMIDE HCL [Concomitant]
  6. DEXAMETHASONE [Concomitant]
  7. TRAMADOL HCL [Suspect]
     Indication: MUSCULOSKELETAL PAIN
     Dosage: MAX 8 CAPSULES PCH PER DAY
     Dates: start: 20000222
  8. AMITRIPTYLINE HYDROCHLORIDE [Concomitant]
  9. SALBUTAMOL AEROSOL [Concomitant]

REACTIONS (2)
  - PANCREATIC DISORDER [None]
  - GLUCOSE TOLERANCE IMPAIRED [None]
